FAERS Safety Report 12013069 (Version 2)
Quarter: 2016Q1

REPORT INFORMATION
  Report Type: Other
  Country: US (occurrence: US)
  Receive Date: 20160205
  Receipt Date: 20160301
  Transmission Date: 20160526
  Serious: Yes (Hospitalization, Other)
  Sender: FDA-Public Use
  Company Number: US-SHIRE-US201600796

PATIENT
  Age: 47 Year
  Sex: Female

DRUGS (1)
  1. GATTEX [Suspect]
     Active Substance: TEDUGLUTIDE\WATER
     Indication: SHORT-BOWEL SYNDROME
     Dosage: 4 ML, 1X/DAY:QD AT 7:00 P.M.
     Route: 058
     Dates: start: 20150402

REACTIONS (5)
  - Sepsis [Recovered/Resolved]
  - Hospitalisation [Recovered/Resolved]
  - Enteritis infectious [Recovered/Resolved]
  - Malaise [Recovered/Resolved]
  - Fistula [Recovered/Resolved]

NARRATIVE: CASE EVENT DATE: 201601
